FAERS Safety Report 17787123 (Version 2)
Quarter: 2020Q4

REPORT INFORMATION
  Report Type: Spontaneous
  Country: NL (occurrence: NL)
  Receive Date: 20200514
  Receipt Date: 20201013
  Transmission Date: 20210113
  Serious: Yes (Death, Hospitalization)
  Sender: FDA-Public Use
  Company Number: NL-TEVA-2020-NL-1233617

PATIENT
  Age: 9 Year
  Sex: Female

DRUGS (9)
  1. ISONIAZIDE TABLET 200MG / ISONIAZIDUM TABLET 200MG - NON-CURRENT DRUG [Concomitant]
     Active Substance: ISONIAZID
  2. METHYLPREDNISOLON INJECTIEPOEDER 500MG - NON-CURRENT DRUG / METHYLPRED [Suspect]
     Active Substance: METHYLPREDNISOLONE
     Indication: JUVENILE IDIOPATHIC ARTHRITIS
     Dosage: PULSES.THERAPY START DATE, AND END  DATE :ASKU
  3. INFLIXIMAB INFUSIEPOEDER 100MG / REMICADE INFUSIEPOEDER FLACON 100MG [Suspect]
     Active Substance: INFLIXIMAB
     Dosage: 20 MG/KG, QMO,INFLIXIMAB, THERAPY START DATE AND END DATE : ASKU
  4. PYRAZINAMIDE TABLET 500MG / PYRAZINAMIDUM TABLET 500MG - NON-CURRENT D [Concomitant]
     Active Substance: PYRAZINAMIDE
  5. RIFAMPICINE CAPSULE 300MG / RIFAMPICINE CAPSULE 300MG - NON-CURRENT DR [Concomitant]
     Active Substance: RIFAMPIN
  6. ETANERCEPT INJPDR 25MG / ENBREL INJPDR FLAC 25MG - NON-CURRENT DRUG [Suspect]
     Active Substance: ETANERCEPT
     Dosage: 1.6 MG/KG , 0.8 MG/KG TWICE A WEEK,THERAPY START DATE AND END DATE :ASKU
  7. CICLOSPORINE CAPSULE 10MG - NON-CURRENT DRUG / NEORAL CAPSULE 10MG - N [Suspect]
     Active Substance: CYCLOSPORINE
     Indication: JUVENILE IDIOPATHIC ARTHRITIS
     Dosage: THERAPY START DATE AND END DATE :ASKU
  8. PREDNISON TABLET 5MG / PREDNISONUM TABLET 5MG - NON-CURRENT DRUG [Suspect]
     Active Substance: PREDNISONE
     Dosage: THERAPY START DATE AND END DATE : ASKU
  9. METHOTREXAAT TABLET 2,5MG (OUD) - NON-CURRENT DRUG / METHOTREXATUM TAB [Suspect]
     Active Substance: METHOTREXATE SODIUM
     Indication: JUVENILE IDIOPATHIC ARTHRITIS
     Dosage: THERAPY START DATE :ASKU?THERAPY END  DATE :ASKU
     Route: 065

REACTIONS (16)
  - Escherichia infection [Fatal]
  - Cardiopulmonary failure [Fatal]
  - Bacterial test positive [Fatal]
  - Cardiac arrest [Fatal]
  - Oxygen saturation decreased [Fatal]
  - Immune system disorder [Fatal]
  - Device related infection [Fatal]
  - Pneumonia lipoid [Fatal]
  - Death [Fatal]
  - Central venous pressure increased [Fatal]
  - Pneumonia [Fatal]
  - Lymphopenia [Fatal]
  - Respiratory failure [Fatal]
  - Tuberculosis [Fatal]
  - Opportunistic infection [Fatal]
  - Cyst [Fatal]
